FAERS Safety Report 9924457 (Version 1)
Quarter: 2014Q1

REPORT INFORMATION
  Report Type: Spontaneous
  Country: US (occurrence: None)
  Receive Date: 20140224
  Receipt Date: 20140224
  Transmission Date: 20141002
  Serious: Yes (Disabling, Other)
  Sender: FDA-Public Use
  Company Number: None

PATIENT
  Age: 64 Year
  Sex: Female
  Weight: 74.84 kg

DRUGS (1)
  1. PURELL ADVANCED INSTANT HAND SANITIZER [Suspect]
     Indication: PRODUCT USED FOR UNKNOWN INDICATION
     Dosage: INDEFINITELY? ?
     Route: 055

REACTIONS (3)
  - Anaphylactic shock [None]
  - Occupational exposure to product [None]
  - Retirement [None]
